FAERS Safety Report 7265019-4 (Version None)
Quarter: 2011Q1

REPORT INFORMATION
  Report Type: 
  Country: None (occurrence: None)
  Receive Date: 20110131
  Receipt Date: 20100826
  Transmission Date: 20110831
  Serious: Yes (Hospitalization)
  Sender: FDA-Public Use
  Company Number: US-BAYER-201034777NA

PATIENT
  Sex: Female
  Weight: 147 kg

DRUGS (12)
  1. ANTIBIOTICS [Concomitant]
     Dates: start: 20080101
  2. YAZ [Suspect]
     Indication: CONTRACEPTION
     Dates: start: 20010101, end: 20040101
  3. AMBIEN [Concomitant]
     Route: 048
     Dates: start: 20070424
  4. HYDROCODONE BITARTRATE AND ACETAMINOPHEN [Concomitant]
     Dosage: 5-500
     Route: 048
     Dates: start: 20070514
  5. YAZ [Suspect]
     Dates: start: 20080505, end: 20090401
  6. TYLENOL PM [Concomitant]
  7. ROZEREM [Concomitant]
     Route: 048
     Dates: start: 20070621
  8. ADVAIR [Concomitant]
  9. YASMIN [Suspect]
     Indication: CONTRACEPTION
     Dates: start: 20041026, end: 20080101
  10. SINGULAIR [Concomitant]
     Route: 048
     Dates: start: 20070228
  11. IBUPROFEN [Concomitant]
  12. UNCODEABLE ^UNCLASSIFIABLE^ [Concomitant]

REACTIONS (8)
  - INJURY [None]
  - ABDOMINAL PAIN UPPER [None]
  - MURPHY'S SIGN POSITIVE [None]
  - WEIGHT INCREASED [None]
  - CHOLELITHIASIS [None]
  - NAUSEA [None]
  - CHOLECYSTITIS CHRONIC [None]
  - BINGE EATING [None]
